FAERS Safety Report 6892047-0 (Version None)
Quarter: 2010Q3

REPORT INFORMATION
  Report Type: 
  Country: None (occurrence: None)
  Receive Date: 20100731
  Receipt Date: 20080610
  Transmission Date: 20110219
  Serious: Yes (Disabling)
  Sender: FDA-Public Use
  Company Number: US-PFIZER INC-2007099607

PATIENT
  Sex: Female
  Weight: 61.4 kg

DRUGS (2)
  1. NORVASC [Suspect]
     Indication: HYPERTENSION
     Dates: end: 20070101
  2. ACETYLSALICYLIC ACID SRT [Concomitant]

REACTIONS (3)
  - NODULE ON EXTREMITY [None]
  - OEDEMA PERIPHERAL [None]
  - PAIN IN EXTREMITY [None]
